FAERS Safety Report 5313729-8 (Version None)
Quarter: 2007Q2

REPORT INFORMATION
  Report Type: 
  Country: None (occurrence: None)
  Receive Date: 20070425
  Receipt Date: 20070413
  Transmission Date: 20071010
  Serious: Yes (Disabling)
  Sender: FDA-Public Use
  Company Number: BR-1162677

PATIENT

DRUGS (1)
  1. FENACON(DICLOFENAC SODIUM) 0.1% SOLUTION [Suspect]
     Indication: ULCERATIVE KERATITIS
     Dosage: EYE DROPS, SOLUTION, OPHTHALMIC
     Route: 047

REACTIONS (6)
  - BLINDNESS [None]
  - CORNEAL PERFORATION [None]
  - CORNEAL TRANSPLANT [None]
  - EYE INFECTION [None]
  - EYE PAIN [None]
  - PHOTOPHOBIA [None]
